FAERS Safety Report 23977228 (Version 2)
Quarter: 2024Q2

REPORT INFORMATION
  Report Type: Spontaneous
  Country: US (occurrence: US)
  Receive Date: 20240614
  Receipt Date: 20240619
  Transmission Date: 20240716
  Serious: Yes (Other)
  Sender: FDA-Public Use
  Company Number: US-JNJFOC-20240619073

PATIENT
  Sex: Female

DRUGS (4)
  1. TREMFYA [Suspect]
     Active Substance: GUSELKUMAB
     Indication: Psoriatic arthropathy
     Route: 065
     Dates: end: 202309
  2. TREMFYA [Suspect]
     Active Substance: GUSELKUMAB
     Route: 065
  3. TREMFYA [Suspect]
     Active Substance: GUSELKUMAB
     Dosage: START DATE: 16/APR/2024
     Route: 065
  4. XELJANZ [Concomitant]
     Active Substance: TOFACITINIB CITRATE
     Indication: Psoriatic arthropathy
     Dates: end: 202401

REACTIONS (8)
  - Psoriatic arthropathy [Unknown]
  - Drug ineffective [Unknown]
  - Nasopharyngitis [Unknown]
  - Infection [Unknown]
  - Product dose omission issue [Unknown]
  - Drug delivery system malfunction [Unknown]
  - Expired product administered [Unknown]
  - Accidental exposure to product [Unknown]

NARRATIVE: CASE EVENT DATE: 20230101
